FAERS Safety Report 16956017 (Version 3)
Quarter: 2021Q2

REPORT INFORMATION
  Report Type: Spontaneous
  Country: US (occurrence: US)
  Receive Date: 20191024
  Receipt Date: 20210514
  Transmission Date: 20210716
  Serious: No
  Sender: FDA-Public Use
  Company Number: US-PFIZER INC-2019272044

PATIENT
  Age: 73 Year
  Sex: Female
  Weight: 104 kg

DRUGS (3)
  1. IBRANCE [Suspect]
     Active Substance: PALBOCICLIB
     Indication: BREAST CANCER FEMALE
     Dosage: 125 MG, 1X/DAY (TAKE 1 ONCE A DAY X 28 DAYS)
     Dates: start: 201904
  2. LETROZOLE. [Concomitant]
     Active Substance: LETROZOLE
     Dosage: 2.5 MG, UNK
  3. IBRANCE [Suspect]
     Active Substance: PALBOCICLIB
     Dosage: 125 MG

REACTIONS (3)
  - Neoplasm progression [Unknown]
  - Malaise [Unknown]
  - Hypoacusis [Unknown]

NARRATIVE: CASE EVENT DATE: 201910
